FAERS Safety Report 7603829-1 (Version None)
Quarter: 2011Q3

REPORT INFORMATION
  Report Type: 
  Country: None (occurrence: None)
  Receive Date: 20110712
  Receipt Date: 20110629
  Transmission Date: 20111222
  Serious: Yes (Other)
  Sender: FDA-Public Use
  Company Number: US-VIIV HEALTHCARE LIMITED-B0731761A

PATIENT
  Age: 53 Year

DRUGS (5)
  1. LAMIVUDINE-HIV [Suspect]
     Indication: HIV INFECTION
     Route: 065
  2. ZIDOVUDINE [Suspect]
     Indication: HIV INFECTION
     Route: 065
  3. COCAINE [Concomitant]
  4. ABACAVIR [Suspect]
     Indication: HIV INFECTION
     Route: 065
  5. RITONAVIR [Suspect]
     Indication: HIV INFECTION
     Route: 065

REACTIONS (6)
  - IMMUNE RECONSTITUTION SYNDROME [None]
  - PERICARDIAL EFFUSION [None]
  - PERICARDITIS [None]
  - CHEST PAIN [None]
  - TACHYCARDIA [None]
  - MYCOBACTERIUM AVIUM COMPLEX INFECTION [None]
